FAERS Safety Report 17519588 (Version 3)
Quarter: 2020Q3

REPORT INFORMATION
  Report Type: Report from Study
  Country: US (occurrence: US)
  Receive Date: 20200309
  Receipt Date: 20200729
  Transmission Date: 20201102
  Serious: Yes (Hospitalization, Other)
  Sender: FDA-Public Use
  Company Number: NVSC2020US061450

PATIENT
  Age: 22 Year
  Sex: Male
  Weight: 55.4 kg

DRUGS (8)
  1. ADAKVEO [Suspect]
     Active Substance: CRIZANLIZUMAB-TMCA
     Dosage: 1 DF, QMO
     Route: 042
     Dates: start: 20200316
  2. ADAKVEO [Suspect]
     Active Substance: CRIZANLIZUMAB-TMCA
     Dosage: UNK
     Route: 065
  3. ADAKVEO [Suspect]
     Active Substance: CRIZANLIZUMAB-TMCA
     Indication: SICKLE CELL DISEASE
     Dosage: QMO
     Route: 042
     Dates: start: 20200207
  4. ADAKVEO [Suspect]
     Active Substance: CRIZANLIZUMAB-TMCA
     Dosage: 277 MG (ONE TIME ONLY 200 ML/HR OVER 30 MINS)
     Route: 042
     Dates: start: 20200219, end: 20200219
  5. OXYCODONE [Concomitant]
     Active Substance: OXYCODONE
     Indication: SICKLE CELL DISEASE
     Dosage: 5 TO 15MG
     Route: 065
     Dates: start: 2010
  6. HYDROXYUREA. [Concomitant]
     Active Substance: HYDROXYUREA
     Indication: SICKLE CELL DISEASE
     Dosage: 1500 MG, QD
     Route: 065
     Dates: start: 2018
  7. ADAKVEO [Suspect]
     Active Substance: CRIZANLIZUMAB-TMCA
     Dosage: 5 MG
     Route: 042
     Dates: start: 20200219
  8. MELOXICAM. [Concomitant]
     Active Substance: MELOXICAM
     Indication: PRODUCT USED FOR UNKNOWN INDICATION
     Dosage: 15 MG, QD
     Route: 065
     Dates: start: 2017

REACTIONS (8)
  - Somnolence [Recovered/Resolved]
  - Fatigue [Recovered/Resolved]
  - Oropharyngeal pain [Recovered/Resolved]
  - Pyrexia [Recovered/Resolved]
  - Sickle cell anaemia with crisis [Recovered/Resolved]
  - Somnolence [Recovered/Resolved]
  - Influenza [Recovered/Resolved]
  - Somnolence [Recovered/Resolved]

NARRATIVE: CASE EVENT DATE: 20200207
